FAERS Safety Report 10700002 (Version 1)
Quarter: 2015Q1

REPORT INFORMATION
  Report Type: Spontaneous
  Country: US (occurrence: None)
  Receive Date: 20150107
  Receipt Date: 20150107
  Transmission Date: 20150721
  Serious: Yes (Hospitalization, Other)
  Sender: FDA-Public Use
  Company Number: 2014SGN01741

PATIENT
  Age: 72 Year
  Sex: Female
  Weight: 93.8 kg

DRUGS (4)
  1. DOXORUBICIN (DOXORUBICIN) INJECTION [Suspect]
     Active Substance: DOXORUBICIN
     Indication: T-CELL LYMPHOMA
     Dosage: 50 MG/M2, Q21D, INTRAVENOUS
     Route: 042
     Dates: start: 20141003, end: 20141205
  2. CYCLOPHOSPHAMIDE. [Suspect]
     Active Substance: CYCLOPHOSPHAMIDE
     Indication: T-CELL LYMPHOMA
     Dosage: 750 MG/M2,Q21D, INTRAVENOUS
     Route: 042
     Dates: start: 20141003, end: 20141205
  3. STUDY DRUG [Suspect]
     Active Substance: INVESTIGATIONAL PRODUCT
     Indication: T-CELL LYMPHOMA
     Dosage: BLINDED, INFORMATION WITHHELD
     Dates: start: 20141030, end: 20141205
  4. PREDNISONE (PREDNISONE) ORAL [Suspect]
     Active Substance: PREDNISONE
     Indication: T-CELL LYMPHOMA
     Dosage: 100 MG, CYCLE, ORAL
     Route: 048
     Dates: start: 20141003, end: 20141205

REACTIONS (4)
  - Pneumonia [None]
  - Acute respiratory failure [None]
  - Faecal incontinence [None]
  - Urinary incontinence [None]

NARRATIVE: CASE EVENT DATE: 20141222
